FAERS Safety Report 8823953 (Version 2)
Quarter: 2012Q4

REPORT INFORMATION
  Report Type: 
  Country: US (occurrence: US)
  Receive Date: 20121003
  Receipt Date: 20121024
  Transmission Date: 20130627
  Serious: Yes (Hospitalization)
  Sender: FDA-Public Use
  Company Number: US-GILEAD-2012-0062271

PATIENT
  Age: 83 Year
  Sex: Female

DRUGS (2)
  1. LETAIRIS [Suspect]
     Indication: HEART DISEASE CONGENITAL
     Dosage: 5 mg, QD
     Route: 048
     Dates: start: 20120906, end: 20120923
  2. OXYGEN [Concomitant]

REACTIONS (2)
  - Dyspnoea [Unknown]
  - Oxygen saturation [Unknown]
